FAERS Safety Report 19095699 (Version 6)
Quarter: 2021Q4

REPORT INFORMATION
  Report Type: Spontaneous
  Country: US (occurrence: None)
  Receive Date: 20210406
  Receipt Date: 20211123
  Transmission Date: 20220303
  Serious: Yes (Hospitalization, Other)
  Sender: FDA-Public Use
  Company Number: US-MERCK HEALTHCARE KGAA-9218677

PATIENT
  Age: 64 Year
  Sex: Female

DRUGS (5)
  1. REBIF [Suspect]
     Active Substance: INTERFERON BETA-1A
     Indication: Multiple sclerosis
     Dosage: REBIDOSE
     Route: 058
     Dates: start: 2007
  2. REBIF [Suspect]
     Active Substance: INTERFERON BETA-1A
     Dosage: REBIF PREFILLED SYRINGE?REBIDOSE
     Route: 058
     Dates: start: 201602
  3. REBIF [Suspect]
     Active Substance: INTERFERON BETA-1A
     Dosage: REBIDOSE
     Route: 058
     Dates: start: 20170219
  4. REBIF [Suspect]
     Active Substance: INTERFERON BETA-1A
     Dosage: REBIDOSE
     Route: 058
     Dates: start: 20210214, end: 2021
  5. REBIF [Suspect]
     Active Substance: INTERFERON BETA-1A
     Dosage: REBIDOSE
     Route: 058
     Dates: start: 2021

REACTIONS (12)
  - Heart valve incompetence [Recovered/Resolved]
  - Colitis [Recovered/Resolved]
  - Clostridium difficile infection [Recovered/Resolved]
  - Cardiac failure congestive [Recovered/Resolved]
  - Syncope [Unknown]
  - Atrial fibrillation [Unknown]
  - Blood pressure decreased [Not Recovered/Not Resolved]
  - Device placement issue [Unknown]
  - Device dislocation [Unknown]
  - Fall [Unknown]
  - Upper limb fracture [Unknown]
  - Product dose omission issue [Recovered/Resolved]

NARRATIVE: CASE EVENT DATE: 20201201
